FAERS Safety Report 9813633 (Version 8)
Quarter: 2014Q1

REPORT INFORMATION
  Report Type: Spontaneous
  Country: US (occurrence: US)
  Receive Date: 20140113
  Receipt Date: 20140210
  Transmission Date: 20141002
  Serious: Yes (Death)
  Sender: FDA-Public Use
  Company Number: US-JNJFOC-20140104772

PATIENT
  Age: 60 Year
  Sex: Male
  Weight: 90.27 kg

DRUGS (9)
  1. XARELTO [Suspect]
     Indication: PRODUCT USED FOR UNKNOWN INDICATION
     Route: 048
  2. PREDNISONE [Concomitant]
     Route: 065
  3. GLUCOSAMINE [Concomitant]
     Route: 065
  4. ALBUTEROL [Concomitant]
     Route: 065
  5. SPIRIVA [Concomitant]
     Route: 065
  6. SYMBICORT [Concomitant]
     Route: 065
  7. ACETAMINOPHEN [Concomitant]
     Route: 065
  8. VITAMIN D [Concomitant]
     Route: 065
  9. QVAR [Concomitant]
     Route: 065

REACTIONS (1)
  - Gastrointestinal haemorrhage [Fatal]
